FAERS Safety Report 8894264 (Version 1)
Quarter: 2012Q4

REPORT INFORMATION
  Report Type: 
  Country: US (occurrence: US)
  Receive Date: 20121107
  Receipt Date: 20121107
  Transmission Date: 20130627
  Serious: No
  Sender: FDA-Public Use
  Company Number: US-AMGEN-USASP2011048681

PATIENT
  Age: 69 Year
  Sex: Female
  Weight: 63.49 kg

DRUGS (12)
  1. ENBREL [Suspect]
     Indication: RHEUMATOID ARTHRITIS
     Dosage: 50 mg, qwk
     Route: 058
     Dates: start: 20110911, end: 20120108
  2. VOLTAREN                           /00372301/ [Concomitant]
     Dosage: 75 mg, UNK
     Route: 048
  3. ARAVA [Concomitant]
     Dosage: 20 mg, UNK
     Route: 048
  4. AMITRIPTYLIN [Concomitant]
     Dosage: 25 mg, UNK
     Route: 048
  5. SULFASALAZINE [Concomitant]
     Dosage: 500 mg, UNK
     Route: 048
  6. LISINOPRIL [Concomitant]
     Dosage: 2.5 mg, UNK
     Route: 048
  7. ALENDRONATE [Concomitant]
     Dosage: 10 mg, UNK
     Route: 048
  8. VIT C [Concomitant]
     Dosage: 500 mg, UNK
     Route: 048
  9. VITAMIN D /00107901/ [Concomitant]
     Dosage: 400 IU, UNK
     Route: 048
  10. OSTEO-BI-FLEX [Concomitant]
     Route: 048
  11. CALCIUM [Concomitant]
     Dosage: 500 mg, UNK
     Route: 048
  12. FISH OIL [Concomitant]
     Route: 048

REACTIONS (7)
  - Injection site mass [Unknown]
  - Injection site haemorrhage [Not Recovered/Not Resolved]
  - Injection site bruising [Not Recovered/Not Resolved]
  - Injection site pruritus [Unknown]
  - Injection site erythema [Unknown]
  - Hypersensitivity [Unknown]
  - Drug eruption [Unknown]
